FAERS Safety Report 9080678 (Version 3)
Quarter: 2013Q3

REPORT INFORMATION
  Report Type: Report from Study
  Country: BR (occurrence: BR)
  Receive Date: 20130131
  Receipt Date: 20130903
  Transmission Date: 20140515
  Serious: Yes (Hospitalization)
  Sender: FDA-Public Use
  Company Number: BR-AMGEN-BRACT2011008806

PATIENT
  Age: 34 Year
  Sex: Female
  Weight: 55 kg

DRUGS (7)
  1. ETANERCEPT [Suspect]
     Indication: ANKYLOSING SPONDYLITIS
     Dosage: 50 MG, QWK
     Route: 058
     Dates: start: 201010
  2. ETANERCEPT [Suspect]
     Dosage: 50 MG, QWK
     Route: 058
     Dates: start: 201207
  3. METHOTREXATE [Concomitant]
     Indication: SPONDYLITIS
     Dosage: 3 TABLETS OF 2.5MG WEEKLY
  4. FOLIC ACID [Concomitant]
     Dosage: 1 DF, 1X/DAY
  5. VITAMIN C                          /00008001/ [Concomitant]
     Indication: IMMUNODEFICIENCY
     Dosage: 1 DF, QD
  6. IBUPROFEN [Concomitant]
     Indication: PAIN
     Dosage: 600 MG, AS NEEDED
     Dates: start: 2009
  7. IBUPROFEN [Concomitant]
     Dosage: 600 MG, AS NEEDED
     Dates: start: 2011

REACTIONS (12)
  - Erythema [Unknown]
  - Pain in extremity [Unknown]
  - Back pain [Unknown]
  - Synovial cyst [Unknown]
  - Immune system disorder [Not Recovered/Not Resolved]
  - Haematocrit decreased [Unknown]
  - Asthenia [Unknown]
  - Swelling [Unknown]
  - Infection [Unknown]
  - Skin infection [Unknown]
  - Injection site pain [Recovering/Resolving]
  - Rhinitis [Unknown]
